FAERS Safety Report 9838228 (Version 1)
Quarter: 2014Q1

REPORT INFORMATION
  Report Type: Spontaneous
  Country: BR (occurrence: BR)
  Receive Date: 20140123
  Receipt Date: 20140123
  Transmission Date: 20141002
  Serious: Yes (Other)
  Sender: FDA-Public Use
  Company Number: BR-SA-2014SA006583

PATIENT
  Age: 48 Year
  Sex: Female
  Weight: 70 kg

DRUGS (3)
  1. APIDRA [Suspect]
     Indication: TYPE 1 DIABETES MELLITUS
     Dosage: DOSE=30 IU IN THE MORNING AND 20 IU IN THE NIGHT
     Route: 058
     Dates: start: 2008
  2. DEVICE NOS [Concomitant]
     Indication: DEVICE THERAPY
     Dates: start: 2008
  3. INSULIN, REGULAR [Concomitant]
     Indication: TYPE 1 DIABETES MELLITUS
     Route: 058

REACTIONS (1)
  - Leg amputation [Not Recovered/Not Resolved]
